FAERS Safety Report 18813971 (Version 1)
Quarter: 2021Q1

REPORT INFORMATION
  Report Type: Spontaneous
  Country: JP (occurrence: JP)
  Receive Date: 20210201
  Receipt Date: 20210201
  Transmission Date: 20210419
  Serious: Yes (Other)
  Sender: FDA-Public Use
  Company Number: JP-LUPIN PHARMACEUTICALS INC.-2021-00933

PATIENT
  Age: 64 Year
  Sex: Female

DRUGS (6)
  1. INFLIXIMAB [Suspect]
     Active Substance: INFLIXIMAB
     Indication: COLITIS
     Dosage: 5 MILLIGRAM/KILOGRAM, UNK (SINGLE DOSE)
     Route: 065
  2. PREDNISOLONE. [Suspect]
     Active Substance: PREDNISOLONE
     Indication: COLITIS
     Dosage: 1 MILLIGRAM/KILOGRAM, UNK (50 MG)
     Route: 048
  3. PEMETREXED. [Concomitant]
     Active Substance: PEMETREXED
     Indication: ADENOCARCINOMA
     Dosage: 500 MILLIGRAM/SQ. METER, UNK
     Route: 065
  4. PEMBROLIZUMAB. [Concomitant]
     Active Substance: PEMBROLIZUMAB
     Indication: ADENOCARCINOMA
     Dosage: 200 MILLIGRAM, UNK
     Route: 065
  5. METHYLPREDNISOLONE. [Suspect]
     Active Substance: METHYLPREDNISOLONE
     Indication: COLITIS
     Dosage: 2 MILLIGRAM/KILOGRAM, UNK (100 MG)
     Route: 042
  6. CISPLATIN. [Concomitant]
     Active Substance: CISPLATIN
     Indication: ADENOCARCINOMA
     Dosage: 75 MILLIGRAM/SQ. METER, UNK
     Route: 065

REACTIONS (2)
  - Ulcer [Recovering/Resolving]
  - Cytomegalovirus infection [Recovering/Resolving]
